FAERS Safety Report 18692359 (Version 2)
Quarter: 2021Q1

REPORT INFORMATION
  Report Type: Spontaneous
  Country: CN (occurrence: CN)
  Receive Date: 20210103
  Receipt Date: 20210117
  Transmission Date: 20210419
  Serious: Yes (Other)
  Sender: FDA-Public Use
  Company Number: CN-UCBSA-2020016047

PATIENT
  Age: 33 Year
  Sex: Female
  Weight: 57.5 kg

DRUGS (2)
  1. METHYLPREDNISOLONE. [Concomitant]
     Active Substance: METHYLPREDNISOLONE
     Indication: PRODUCT USED FOR UNKNOWN INDICATION
  2. CIMZIA [Suspect]
     Active Substance: CERTOLIZUMAB PEGOL
     Indication: RHEUMATOID ARTHRITIS
     Dosage: 400 MILLIGRAM, UNK
     Dates: start: 20191204

REACTIONS (4)
  - Maternal exposure before pregnancy [Unknown]
  - Premature delivery [Unknown]
  - Maternal exposure during breast feeding [Unknown]
  - Oligohydramnios [Unknown]

NARRATIVE: CASE EVENT DATE: 2020
